FAERS Safety Report 9884925 (Version 2)
Quarter: 2014Q1

REPORT INFORMATION
  Report Type: Spontaneous
  Country: US (occurrence: US)
  Receive Date: 20140210
  Receipt Date: 20140210
  Transmission Date: 20141002
  Serious: Yes (Other)
  Sender: FDA-Public Use
  Company Number: US-ROCHE-1335659

PATIENT
  Age: 53 Year
  Sex: Male
  Weight: 57.43 kg

DRUGS (5)
  1. TAMIFLU [Suspect]
     Indication: INFLUENZA
     Dosage: TWICE A DAY
     Route: 048
     Dates: start: 20140116, end: 20140117
  2. ASPIRIN [Concomitant]
     Route: 065
  3. ALTACE [Concomitant]
     Indication: HYPERTENSION
     Route: 048
  4. TOPAMAX [Concomitant]
     Indication: MIGRAINE
     Route: 048
  5. IMITREX [Concomitant]
     Indication: MIGRAINE
     Dosage: AS REQUIRED
     Route: 048

REACTIONS (7)
  - Pruritus [Recovered/Resolved]
  - Hallucination [Recovered/Resolved]
  - Formication [Unknown]
  - Insomnia [Unknown]
  - Dry mouth [Unknown]
  - Hyperhidrosis [Unknown]
  - Feeling cold [Unknown]
